FAERS Safety Report 12769970 (Version 1)
Quarter: 2016Q3

REPORT INFORMATION
  Report Type: Spontaneous
  Country: HR (occurrence: HR)
  Receive Date: 20160922
  Receipt Date: 20160922
  Transmission Date: 20161109
  Serious: Yes (Hospitalization, Other)
  Sender: FDA-Public Use
  Company Number: HR-UCBSA-2016035585

PATIENT
  Sex: Female

DRUGS (2)
  1. PHEMITON [Suspect]
     Active Substance: MEPHOBARBITAL
     Indication: PRODUCT USED FOR UNKNOWN INDICATION
     Dosage: 6 G, TOTAL
     Route: 048
     Dates: start: 20160222, end: 20160222
  2. KEPPRA [Suspect]
     Active Substance: LEVETIRACETAM
     Indication: PRODUCT USED FOR UNKNOWN INDICATION
     Dosage: 60 G, TOTAL
     Route: 048
     Dates: start: 20160222, end: 20160222

REACTIONS (3)
  - Somnolence [Unknown]
  - Suicide attempt [Unknown]
  - Intentional overdose [Unknown]

NARRATIVE: CASE EVENT DATE: 20160222
